FAERS Safety Report 13733786 (Version 1)
Quarter: 2017Q3

REPORT INFORMATION
  Report Type: Spontaneous
  Country: PL (occurrence: PL)
  Receive Date: 20170707
  Receipt Date: 20170707
  Transmission Date: 20171127
  Serious: Yes (Hospitalization)
  Sender: FDA-Public Use
  Company Number: PL-BAXTER-2017BAX025410

PATIENT
  Age: 64 Year
  Sex: Female

DRUGS (14)
  1. NOLPAZA [Suspect]
     Active Substance: PANTOPRAZOLE SODIUM
     Indication: PRODUCT USED FOR UNKNOWN INDICATION
     Route: 048
     Dates: start: 20160414, end: 20160421
  2. OPTILETS [Suspect]
     Active Substance: VITAMINS
     Indication: PRODUCT USED FOR UNKNOWN INDICATION
     Dosage: SOLUTION FOR INFUSION, COMPLEX PRODUCT, MULTI ELECTROLYTE PHYSIOLOGICAL SOLUTION
     Route: 042
     Dates: start: 20160414, end: 20160421
  3. NATRIUM CHLORATUM 0,9% BAXTER [Suspect]
     Active Substance: SODIUM CHLORIDE
     Indication: PRODUCT USED FOR UNKNOWN INDICATION
     Route: 042
     Dates: start: 20160414, end: 20160421
  4. BIOFUROKSYM [Suspect]
     Active Substance: CEFUROXIME SODIUM
     Indication: CHRONIC SINUSITIS
     Route: 042
     Dates: start: 20160414, end: 20160414
  5. DEXAVEN [Suspect]
     Active Substance: DEXAMETHASONE
     Indication: PRODUCT USED FOR UNKNOWN INDICATION
     Route: 042
     Dates: start: 20160414, end: 20160421
  6. DIPHERGAN [Suspect]
     Active Substance: PROMETHAZINE HYDROCHLORIDE
     Indication: PRODUCT USED FOR UNKNOWN INDICATION
     Route: 048
     Dates: start: 20160414, end: 20160421
  7. HELIGEN [Suspect]
     Active Substance: OMEPRAZOLE
     Indication: PRODUCT USED FOR UNKNOWN INDICATION
     Dosage: CAPSULE HARD
     Route: 048
     Dates: start: 20160414, end: 20160421
  8. NEBBUD [Suspect]
     Active Substance: BUDESONIDE
     Indication: PRODUCT USED FOR UNKNOWN INDICATION
     Route: 055
     Dates: start: 20160414, end: 20160421
  9. THEOPHYLLINUM BAXTER [Suspect]
     Active Substance: THEOPHYLLINE ANHYDROUS
     Indication: ASTHMA
     Route: 065
  10. BIOFUROKSYM [Suspect]
     Active Substance: CEFUROXIME SODIUM
     Indication: ASTHMA
  11. AMERTIL [Suspect]
     Active Substance: CETIRIZINE HYDROCHLORIDE
     Indication: PRODUCT USED FOR UNKNOWN INDICATION
     Route: 048
     Dates: start: 20160414, end: 20160421
  12. CLEMASTINE [Suspect]
     Active Substance: CLEMASTINE
     Indication: PRODUCT USED FOR UNKNOWN INDICATION
     Dosage: STRENGTH:2MG/2ML; DOSE: 2MG/2ML
     Route: 042
     Dates: start: 20160414, end: 20160421
  13. BIOFUROKSYM [Suspect]
     Active Substance: CEFUROXIME SODIUM
     Indication: BRONCHITIS
     Route: 065
  14. THEOPHYLLINUM BAXTER [Suspect]
     Active Substance: THEOPHYLLINE ANHYDROUS
     Dosage: DOSE: 300MG/250ML
     Route: 042
     Dates: start: 20160414, end: 20160414

REACTIONS (6)
  - Vertigo [Unknown]
  - Erythema [Unknown]
  - Dyspnoea [Unknown]
  - Chest pain [Unknown]
  - Nausea [Unknown]
  - Abdominal pain upper [Unknown]

NARRATIVE: CASE EVENT DATE: 20160414
